FAERS Safety Report 19416193 (Version 1)
Quarter: 2021Q2

REPORT INFORMATION
  Report Type: Spontaneous
  Country: US (occurrence: US)
  Receive Date: 20210615
  Receipt Date: 20210615
  Transmission Date: 20210717
  Serious: No
  Sender: FDA-Public Use
  Company Number: US-ALLERGAN-2105464US

PATIENT
  Sex: Female

DRUGS (5)
  1. KYBELLA [Suspect]
     Active Substance: DEOXYCHOLIC ACID
     Indication: FAT TISSUE INCREASED
     Dosage: UNK UNK, SINGLE
     Dates: start: 20210203, end: 20210203
  2. KYBELLA [Suspect]
     Active Substance: DEOXYCHOLIC ACID
     Dosage: UNK UNK, SINGLE
     Dates: start: 20201117, end: 20201117
  3. LIP FILLER [Concomitant]
  4. DUPIXENT [Concomitant]
     Active Substance: DUPILUMAB
     Indication: ECZEMA
     Dosage: UNK UNK, Q WEEK
  5. KYBELLA [Suspect]
     Active Substance: DEOXYCHOLIC ACID
     Dosage: UNK UNK, SINGLE
     Dates: start: 20201129, end: 20201129

REACTIONS (1)
  - Therapeutic response unexpected [Unknown]
